FAERS Safety Report 8430583-6 (Version None)
Quarter: 2012Q2

REPORT INFORMATION
  Report Type: 
  Country: None (occurrence: None)
  Receive Date: 20120612
  Receipt Date: 20120606
  Transmission Date: 20120825
  Serious: Yes (Life-Threatening)
  Sender: FDA-Public Use
  Company Number: RU-GLAXOSMITHKLINE-B0807299A

PATIENT
  Age: 3 Year
  Sex: Female

DRUGS (4)
  1. CEFUROXIME [Suspect]
     Indication: RESPIRATORY TRACT INFECTION
     Route: 065
  2. CLENBUTEROL [Concomitant]
  3. SULFONAMIDES-UNKNOWN TYPE [Concomitant]
  4. CETIRIZINE [Concomitant]

REACTIONS (3)
  - CHROMATURIA [None]
  - OCULAR ICTERUS [None]
  - NAUSEA [None]
